FAERS Safety Report 5633795-X (Version None)
Quarter: 2008Q1

REPORT INFORMATION
  Report Type: 
  Country: None (occurrence: None)
  Receive Date: 20080219
  Receipt Date: 20080204
  Transmission Date: 20080703
  Serious: Yes (Life-Threatening)
  Sender: FDA-Public Use
  Company Number: S08-ESP-00436-01

PATIENT
  Age: 52 Year
  Sex: Female

DRUGS (6)
  1. ESCITALOPRAM [Suspect]
  2. SEROQUEL [Suspect]
  3. LEXATIN (BROMAZEPAM) [Suspect]
     Dosage: 12 MG QD PO
     Route: 048
     Dates: end: 20070801
  4. SERETIDE ACCUHALER (SERETIDE) [Concomitant]
  5. AMLODIPINE [Concomitant]
  6. ATROVENT [Concomitant]

REACTIONS (2)
  - DRUG INTERACTION [None]
  - RESPIRATORY FAILURE [None]
